FAERS Safety Report 11001950 (Version 2)
Quarter: 2015Q3

REPORT INFORMATION
  Report Type: Spontaneous
  Country: US (occurrence: US)
  Receive Date: 20150408
  Receipt Date: 20150723
  Transmission Date: 20151125
  Serious: No
  Sender: FDA-Public Use
  Company Number: US-ASTELLAS-2015US010412

PATIENT
  Sex: Female

DRUGS (1)
  1. MYRBETRIQ [Suspect]
     Active Substance: MIRABEGRON
     Indication: POLLAKIURIA
     Dosage: 50 MG DAILY FOR 4 MONTHS
     Route: 065
     Dates: start: 20140722

REACTIONS (2)
  - Intentional product use issue [Unknown]
  - Drug effect incomplete [Unknown]
